FAERS Safety Report 9477970 (Version 1)
Quarter: 2013Q3

REPORT INFORMATION
  Report Type: Spontaneous
  Country: AU (occurrence: AU)
  Receive Date: 20130827
  Receipt Date: 20130827
  Transmission Date: 20140515
  Serious: Yes (Other)
  Sender: FDA-Public Use
  Company Number: AU-AMGEN-AUSSP2013059015

PATIENT
  Age: 54 Year
  Sex: Female

DRUGS (2)
  1. XGEVA [Suspect]
     Indication: BREAST CANCER
     Route: 065
  2. ABRAXANE                           /01116001/ [Concomitant]

REACTIONS (2)
  - Impaired healing [Not Recovered/Not Resolved]
  - Cholecystectomy [Unknown]
